FAERS Safety Report 13288783 (Version 2)
Quarter: 2017Q1

REPORT INFORMATION
  Report Type: Spontaneous
  Country: AU (occurrence: AU)
  Receive Date: 20170302
  Receipt Date: 20170313
  Transmission Date: 20170428
  Serious: Yes (Hospitalization)
  Sender: FDA-Public Use
  Company Number: AU-GILEAD-2017-0260550

PATIENT
  Age: 60 Year
  Sex: Male

DRUGS (6)
  1. SOVALDI [Suspect]
     Active Substance: SOFOSBUVIR
     Indication: CHRONIC HEPATITIS C
     Dosage: 400 UNK, UNK
     Route: 065
     Dates: start: 20170221, end: 20170226
  2. ONDANSETRON [Concomitant]
     Active Substance: ONDANSETRON
     Route: 065
  3. METFORMIN [Concomitant]
     Active Substance: METFORMIN HYDROCHLORIDE
     Route: 065
  4. ROSUVASTATIN. [Concomitant]
     Active Substance: ROSUVASTATIN
     Route: 065
  5. SOVALDI [Suspect]
     Active Substance: SOFOSBUVIR
     Dosage: 400 UNK, UNK
     Route: 048
     Dates: start: 20170227
  6. RIBAVIRIN. [Suspect]
     Active Substance: RIBAVIRIN
     Indication: CHRONIC HEPATITIS C
     Dosage: 1200 MG, UNK
     Route: 065

REACTIONS (9)
  - Dehydration [Unknown]
  - Blood bilirubin increased [Unknown]
  - Arrhythmia [Unknown]
  - Nausea [Unknown]
  - Gastroenteritis viral [Unknown]
  - Drug dose omission [Unknown]
  - Diarrhoea [Unknown]
  - Headache [Unknown]
  - Electrocardiogram QT interval abnormal [Unknown]
